FAERS Safety Report 22128014 (Version 1)
Quarter: 2023Q1

REPORT INFORMATION
  Report Type: Report from Study
  Country: US (occurrence: US)
  Receive Date: 20230323
  Receipt Date: 20230323
  Transmission Date: 20230417
  Serious: Yes (Hospitalization)
  Sender: FDA-Public Use
  Company Number: US-ABBVIE-4698527

PATIENT
  Sex: Female

DRUGS (1)
  1. HUMIRA [Suspect]
     Active Substance: ADALIMUMAB
     Indication: Product used for unknown indication
     Route: 058
     Dates: start: 20080101

REACTIONS (5)
  - Stomatitis [Unknown]
  - Fluid intake reduced [Recovered/Resolved]
  - Chronic kidney disease [Unknown]
  - Feeding disorder [Recovered/Resolved]
  - Pustule [Unknown]
